FAERS Safety Report 21580200 (Version 1)
Quarter: 2022Q4

REPORT INFORMATION
  Report Type: Spontaneous
  Country: US (occurrence: US)
  Receive Date: 20221110
  Receipt Date: 20221110
  Transmission Date: 20230113
  Serious: No
  Sender: FDA-Public Use
  Company Number: US-APOTEX-2022AP006276

PATIENT
  Age: 68 Year
  Sex: Female

DRUGS (1)
  1. FENTANYL TRANSDERMAL SYSTEM [Suspect]
     Active Substance: FENTANYL
     Indication: Back disorder
     Dosage: UNK
     Route: 062
     Dates: start: 2010

REACTIONS (3)
  - Cough [Unknown]
  - Productive cough [Unknown]
  - Dyspnoea [Unknown]
